FAERS Safety Report 17453843 (Version 3)
Quarter: 2020Q3

REPORT INFORMATION
  Report Type: Spontaneous
  Country: US (occurrence: CA)
  Receive Date: 20200224
  Receipt Date: 20200722
  Transmission Date: 20201102
  Serious: Yes (Hospitalization, Other)
  Sender: FDA-Public Use
  Company Number: CA-ACTELION-A-US2020-200602

PATIENT
  Age: 64 Year
  Sex: Female

DRUGS (23)
  1. VOLIBRIS [Suspect]
     Active Substance: AMBRISENTAN
     Indication: PULMONARY ARTERIAL HYPERTENSION
     Dosage: UNK
     Route: 065
     Dates: start: 20200108
  2. XARELTO [Concomitant]
     Active Substance: RIVAROXABAN
  3. LIPITOR [Concomitant]
     Active Substance: ATORVASTATIN CALCIUM
  4. HUMALOG [Concomitant]
     Active Substance: INSULIN LISPRO
  5. CALCIUM [Concomitant]
     Active Substance: CALCIUM
  6. ACLASTA [Concomitant]
     Active Substance: ZOLEDRONIC ACID
  7. SODIUM BICARBONATE. [Concomitant]
     Active Substance: SODIUM BICARBONATE
  8. METOPROLOL. [Concomitant]
     Active Substance: METOPROLOL
  9. ALGINIC ACID [Concomitant]
     Active Substance: ALGINIC ACID
  10. FUROSEMIDE. [Concomitant]
     Active Substance: FUROSEMIDE
  11. INSULIN [Concomitant]
     Active Substance: INSULIN NOS
  12. POTASSIUM [Concomitant]
     Active Substance: POTASSIUM
  13. VITAMIN D [Concomitant]
     Active Substance: VITAMIN D NOS
  14. ATOVAQUONE. [Concomitant]
     Active Substance: ATOVAQUONE
  15. TYLENOL [Concomitant]
     Active Substance: ACETAMINOPHEN
  16. UPTRAVI [Suspect]
     Active Substance: SELEXIPAG
     Indication: PULMONARY ARTERIAL HYPERTENSION
     Dosage: 200 MCG, BID
     Route: 048
     Dates: start: 20200106, end: 20200110
  17. PANTOPRAZOLE [Concomitant]
     Active Substance: PANTOPRAZOLE
  18. ADCIRCA [Suspect]
     Active Substance: TADALAFIL
     Indication: PULMONARY ARTERIAL HYPERTENSION
     Dosage: 40 MG
     Route: 065
     Dates: start: 20140715
  19. LANTUS [Concomitant]
     Active Substance: INSULIN GLARGINE
  20. MAGNESIUM TRISILICATE [Concomitant]
     Active Substance: MAGNESIUM TRISILICATE
  21. PREDNISONE. [Concomitant]
     Active Substance: PREDNISONE
  22. GAVISCON [Concomitant]
     Active Substance: ALUMINUM HYDROXIDE\MAGNESIUM CARBONATE
  23. ALUMINUM HYDROXIDE [ALUMINIUM HYDROXIDE] [Concomitant]
     Active Substance: ALUMINUM HYDROXIDE

REACTIONS (15)
  - Headache [Not Recovered/Not Resolved]
  - Gait disturbance [Not Recovered/Not Resolved]
  - Cellulitis [Not Recovered/Not Resolved]
  - Pyrexia [Not Recovered/Not Resolved]
  - Depressed level of consciousness [Not Recovered/Not Resolved]
  - Nausea [Not Recovered/Not Resolved]
  - Vomiting [Not Recovered/Not Resolved]
  - Abdominal pain upper [Not Recovered/Not Resolved]
  - Hospitalisation [Recovering/Resolving]
  - Pain [Not Recovered/Not Resolved]
  - Joint swelling [Not Recovered/Not Resolved]
  - Diarrhoea [Not Recovered/Not Resolved]
  - Contusion [Not Recovered/Not Resolved]
  - Localised infection [Not Recovered/Not Resolved]
  - Chest pain [Not Recovered/Not Resolved]

NARRATIVE: CASE EVENT DATE: 202001
